FAERS Safety Report 21674796 (Version 1)
Quarter: 2022Q4

REPORT INFORMATION
  Report Type: Spontaneous
  Country: US (occurrence: None)
  Receive Date: 20221201
  Receipt Date: 20221201
  Transmission Date: 20230113
  Serious: No
  Sender: FDA-Public Use
  Company Number: None

PATIENT
  Age: 68 Year
  Sex: Female
  Weight: 45.36 kg

DRUGS (1)
  1. COSENTYX [Suspect]
     Active Substance: SECUKINUMAB
     Indication: Psoriasis
     Dosage: OTHER FREQUENCY : WKLY FOR 4WKS;?
     Route: 058
     Dates: start: 202211

REACTIONS (6)
  - Nausea [None]
  - Diarrhoea [None]
  - Upper respiratory tract infection [None]
  - Urinary tract infection [None]
  - Fungal infection [None]
  - Illness [None]
